FAERS Safety Report 19731617 (Version 1)
Quarter: 2021Q3

REPORT INFORMATION
  Report Type: Other
  Country: CA (occurrence: CA)
  Receive Date: 20210820
  Receipt Date: 20210820
  Transmission Date: 20211014
  Serious: Yes (Other)
  Sender: FDA-Public Use
  Company Number: CA-ROCHE-2725024

PATIENT
  Age: 68 Year
  Sex: Male

DRUGS (19)
  1. METHOTREXATE. [Concomitant]
     Active Substance: METHOTREXATE
     Indication: RHEUMATOID ARTHRITIS
     Route: 058
  2. PERINDOPRIL [Concomitant]
     Active Substance: PERINDOPRIL
  3. METHOTREXATE. [Concomitant]
     Active Substance: METHOTREXATE
     Indication: POLYARTERITIS NODOSA
  4. NAPROSYN [Concomitant]
     Active Substance: NAPROXEN
  5. SULFATRIM [Concomitant]
     Active Substance: SULFAMETHOXAZOLE\TRIMETHOPRIM
  6. RITUXAN [Suspect]
     Active Substance: RITUXIMAB
     Indication: RHEUMATOID ARTHRITIS
     Route: 042
     Dates: start: 20200511
  7. FOLIC ACID. [Concomitant]
     Active Substance: FOLIC ACID
  8. PREGABALIN. [Concomitant]
     Active Substance: PREGABALIN
  9. TYLENOL [Concomitant]
     Active Substance: ACETAMINOPHEN
     Indication: PREMEDICATION
     Route: 048
     Dates: start: 20200311
  10. BRILINTA [Concomitant]
     Active Substance: TICAGRELOR
     Indication: ANTICOAGULANT THERAPY
  11. LIPITOR [Concomitant]
     Active Substance: ATORVASTATIN CALCIUM
  12. RITUXAN [Suspect]
     Active Substance: RITUXIMAB
     Indication: POLYARTERITIS NODOSA
  13. CELLCEPT [Suspect]
     Active Substance: MYCOPHENOLATE MOFETIL\MYCOPHENOLATE MOFETIL HYDROCHLORIDE
     Indication: RHEUMATOID ARTHRITIS
     Route: 065
  14. CELLCEPT [Suspect]
     Active Substance: MYCOPHENOLATE MOFETIL\MYCOPHENOLATE MOFETIL HYDROCHLORIDE
     Indication: POLYARTERITIS NODOSA
  15. ACYCLOVIR. [Concomitant]
     Active Substance: ACYCLOVIR
  16. BENADRYL [Concomitant]
     Active Substance: DIPHENHYDRAMINE HYDROCHLORIDE
     Indication: PREMEDICATION
     Route: 048
     Dates: start: 20200511
  17. CARVEDILOL. [Concomitant]
     Active Substance: CARVEDILOL
  18. PLAQUENIL [Concomitant]
     Active Substance: HYDROXYCHLOROQUINE SULFATE
  19. SOLU?MEDROL [Concomitant]
     Active Substance: METHYLPREDNISOLONE SODIUM SUCCINATE
     Indication: PREMEDICATION
     Route: 042
     Dates: start: 20200511

REACTIONS (6)
  - Blood pressure diastolic abnormal [Unknown]
  - Myocardial infarction [Unknown]
  - Bradycardia [Unknown]
  - Heart rate decreased [Unknown]
  - Myocardial infarction [Unknown]
  - Blood pressure systolic increased [Unknown]

NARRATIVE: CASE EVENT DATE: 20200511
